FAERS Safety Report 8988621 (Version 1)
Quarter: 2012Q4

REPORT INFORMATION
  Report Type: 
  Country: JP (occurrence: JP)
  Receive Date: 20121228
  Receipt Date: 20121228
  Transmission Date: 20130627
  Serious: Yes (Death, Life-Threatening)
  Sender: FDA-Public Use
  Company Number: JP-PFIZER INC-2012328980

PATIENT
  Age: 71 Year
  Sex: Male
  Weight: 91 kg

DRUGS (15)
  1. ZYVOX [Suspect]
     Indication: MEDIASTINITIS
     Dosage: 600 mg, 2x/day
     Route: 041
     Dates: start: 20121113, end: 20121201
  2. BAKTAR [Suspect]
     Indication: PNEUMONIA
     Dosage: 200 mg, 2x/day
     Route: 048
     Dates: start: 20121126, end: 20121201
  3. MEROPEN [Suspect]
     Indication: PNEUMONIA
     Dosage: 500 mg, 4x/day
     Route: 042
     Dates: start: 20121114, end: 20121127
  4. VANCOMYCIN [Suspect]
     Indication: MEDIASTINITIS
     Dosage: UNK
     Route: 042
     Dates: start: 20121019, end: 20121112
  5. CRAVIT [Suspect]
     Indication: PNEUMONIA
     Dosage: 500 mg, 1x/day
     Route: 042
     Dates: start: 20121109, end: 20121111
  6. ZOSYN [Suspect]
     Indication: PNEUMONIA
     Dosage: 4.5 g, 4x/day
     Route: 042
     Dates: start: 20121019, end: 20121111
  7. FUROSEMIDE [Concomitant]
     Route: 048
  8. LANSOPRAZOLE [Concomitant]
     Route: 048
  9. TENORMIN [Concomitant]
     Route: 048
  10. CELTECT [Concomitant]
     Route: 048
  11. DAI-KENCHU-TO [Concomitant]
     Route: 048
  12. AZULENE [Concomitant]
     Route: 048
  13. CINAL [Concomitant]
     Route: 048
  14. PROMAC /JPN/ [Concomitant]
     Route: 048
  15. AMLODIPINE [Concomitant]
     Route: 048

REACTIONS (2)
  - Pancytopenia [Not Recovered/Not Resolved]
  - Disseminated intravascular coagulation [Fatal]
